FAERS Safety Report 14169299 (Version 1)
Quarter: 2017Q4

REPORT INFORMATION
  Report Type: Spontaneous
  Country: US (occurrence: US)
  Receive Date: 20171107
  Receipt Date: 20171107
  Transmission Date: 20180321
  Serious: Yes (Other)
  Sender: FDA-Public Use
  Company Number: None

PATIENT
  Age: 69 Year
  Sex: Female
  Weight: 80.32 kg

DRUGS (13)
  1. UBIQUINOL [Concomitant]
     Active Substance: UBIQUINOL
  2. MAGNESIUM CITRATE. [Concomitant]
     Active Substance: MAGNESIUM CITRATE
  3. ATENOLOL. [Concomitant]
     Active Substance: ATENOLOL
  4. MONTELUKAST [Concomitant]
     Active Substance: MONTELUKAST SODIUM
  5. CURCUMIN [Concomitant]
     Active Substance: CURCUMIN
  6. FISH OIL [Concomitant]
     Active Substance: FISH OIL
  7. IBRANCE [Suspect]
     Active Substance: PALBOCICLIB
     Indication: BREAST CANCER
     Route: 048
     Dates: start: 20170901, end: 20171106
  8. RESTASIS [Concomitant]
     Active Substance: CYCLOSPORINE
  9. LOSARTAN. [Concomitant]
     Active Substance: LOSARTAN
  10. AMLODIPINE [Concomitant]
     Active Substance: AMLODIPINE BESYLATE
  11. CALCIUM CITRATE + D [Concomitant]
  12. TURMERIC [Concomitant]
     Active Substance: HERBALS\TURMERIC
  13. FLAXSEED [Concomitant]
     Active Substance: FLAX SEED

REACTIONS (1)
  - Full blood count decreased [None]

NARRATIVE: CASE EVENT DATE: 20171106
